FAERS Safety Report 6253710-8 (Version None)
Quarter: 2009Q2

REPORT INFORMATION
  Report Type: 
  Country: None (occurrence: None)
  Receive Date: 20090630
  Receipt Date: 20090617
  Transmission Date: 20091009
  Serious: Yes (Other)
  Sender: FDA-Public Use
  Company Number: 220008M09USA

PATIENT
  Age: 15 Year
  Sex: Male

DRUGS (1)
  1. SAIZEN [Suspect]
     Indication: GROWTH HORMONE DEFICIENCY
     Dosage: 3.03 MG, 1 IN 1 DAYS, SUBCUTANEOUS
     Route: 058
     Dates: start: 20000101

REACTIONS (1)
  - MEDULLOBLASTOMA RECURRENT [None]
